FAERS Safety Report 5241487-4 (Version None)
Quarter: 2007Q1

REPORT INFORMATION
  Report Type: 
  Country: None (occurrence: None)
  Receive Date: 20070220
  Receipt Date: 20070216
  Transmission Date: 20070707
  Serious: Yes (Other)
  Sender: FDA-Public Use
  Company Number: US-GLAXOSMITHKLINE-A0640114A

PATIENT
  Sex: Male

DRUGS (3)
  1. AEROLIN [Suspect]
     Dosage: 100MCG UNKNOWN
     Route: 055
  2. CLARITIN-D [Concomitant]
  3. SINGULAIR [Concomitant]

REACTIONS (1)
  - HEPATIC ENZYME INCREASED [None]
